FAERS Safety Report 9197791 (Version 1)
Quarter: 2013Q1

REPORT INFORMATION
  Report Type: Spontaneous
  Country: US (occurrence: US)
  Receive Date: 20130328
  Receipt Date: 20130328
  Transmission Date: 20140127
  Serious: No
  Sender: FDA-Public Use
  Company Number: US-GALDERMA-US-GDP-12414426

PATIENT
  Sex: Female

DRUGS (3)
  1. CLOBEX [Suspect]
     Indication: PSORIASIS
     Route: 061
     Dates: start: 201206
  2. CLOBEX [Suspect]
     Indication: PSORIASIS
     Route: 061
  3. CLOBETASOL [Suspect]

REACTIONS (1)
  - Alopecia [Not Recovered/Not Resolved]
